FAERS Safety Report 21646807 (Version 1)
Quarter: 2022Q4

REPORT INFORMATION
  Report Type: Spontaneous
  Country: SE (occurrence: SE)
  Receive Date: 20221127
  Receipt Date: 20221127
  Transmission Date: 20230113
  Serious: Yes (Hospitalization)
  Sender: FDA-Public Use
  Company Number: None

PATIENT
  Age: 59 Year
  Sex: Female

DRUGS (7)
  1. AJOVY [Suspect]
     Active Substance: FREMANEZUMAB-VFRM
     Indication: Migraine
     Dosage: FORM STRENGTH : 225 MG, UNIT DOSE : 225 MG, FREQUENCY TIME : 4 WEEKS, DURATION : 30 DAYS
     Dates: start: 20221004, end: 20221103
  2. SUMATRIPTAN ACCORD [Concomitant]
     Indication: Product used for unknown indication
     Dosage: 50 MG 1 TABLET IF NEEDED, MAXIMUM 2 PER DAY, FORM STRENGTH : 50 MG
     Route: 065
     Dates: start: 20170830
  3. CITALOPRAM HYDROBROMIDE [Concomitant]
     Active Substance: CITALOPRAM HYDROBROMIDE
     Indication: Product used for unknown indication
     Dosage: FORM STRENGTH : 20 MG, UNIT DOSE : 20 MG, FREQUENCY TIME : 1 DAYS
     Route: 065
     Dates: start: 20180821
  4. PROPIOMAZINE [Concomitant]
     Active Substance: PROPIOMAZINE
     Indication: Product used for unknown indication
     Dosage: FORM STRENGTH : 25 MG, UNIT DOSE : 25 MG, FREQUENCY TIME : 1 DAYS
     Route: 065
     Dates: start: 20190506
  5. NAPROXEN [Concomitant]
     Active Substance: NAPROXEN
     Indication: Product used for unknown indication
     Dosage: 500 MG 1.5 TABLETS AS NEEDED, MAX 2.5 PER DAY, FORM STRENGTH : 500 MG
     Route: 065
     Dates: start: 20220412
  6. AMITRIPTYLINE [Concomitant]
     Active Substance: AMITRIPTYLINE
     Indication: Product used for unknown indication
     Dosage: FORM STRENGTH : 10 MG, UNIT DOSE : 20 MG, FREQUENCY TIME : 1 DAYS
     Route: 065
     Dates: start: 20211129
  7. ESOMEPRAZOLE [Concomitant]
     Active Substance: ESOMEPRAZOLE
     Indication: Product used for unknown indication
     Dosage: 20 MG 1 TABLET IF NEEDED, FORM STRENGTH :  20 MG
     Route: 065
     Dates: start: 20220711

REACTIONS (1)
  - Facial paresis [Not Recovered/Not Resolved]

NARRATIVE: CASE EVENT DATE: 20221021
